FAERS Safety Report 5128461-3 (Version None)
Quarter: 2006Q4

REPORT INFORMATION
  Report Type: 
  Country: None (occurrence: None)
  Receive Date: 20061017
  Receipt Date: 20061004
  Transmission Date: 20070319
  Serious: Yes (Other)
  Sender: FDA-Public Use
  Company Number: PHBS2006FI15488

PATIENT

DRUGS (1)
  1. EXELON [Suspect]

REACTIONS (2)
  - BRONCHIAL OBSTRUCTION [None]
  - INFLUENZA [None]
